FAERS Safety Report 4503871-3 (Version None)
Quarter: 2004Q4

REPORT INFORMATION
  Report Type: 
  Country: None (occurrence: None)
  Receive Date: 20041115
  Receipt Date: 20041108
  Transmission Date: 20050328
  Serious: Yes (Life-Threatening, Hospitalization, Other)
  Sender: FDA-Public Use
  Company Number: 2004-05-0638

PATIENT
  Age: 60 Year
  Sex: Female
  Weight: 55 kg

DRUGS (6)
  1. REBETOL [Suspect]
     Indication: HEPATITIS C
     Dosage: 600-400 MG ORAL
     Route: 048
     Dates: start: 20030909, end: 20040308
  2. INTRON A [Suspect]
     Indication: HEPATITIS C
     Dosage: 6-10MUQD-TIW INTRAMUSCULAR
     Route: 030
     Dates: start: 20030909, end: 20040308
  3. ACINON CAPSULES [Concomitant]
  4. DOGMATYL [Concomitant]
  5. SELBEX [Concomitant]
  6. RABEPRAZOLE SODIUM [Concomitant]

REACTIONS (4)
  - APALLIC SYNDROME [None]
  - INTUBATION [None]
  - REFLUX OESOPHAGITIS [None]
  - SUICIDE ATTEMPT [None]
